FAERS Safety Report 4373182-8 (Version None)
Quarter: 2004Q2

REPORT INFORMATION
  Report Type: 
  Country: None (occurrence: None)
  Receive Date: 20040608
  Receipt Date: 20040227
  Transmission Date: 20050107
  Serious: Yes (Other)
  Sender: FDA-Public Use
  Company Number: JP-ROCHE-360675

PATIENT
  Age: 8 Year
  Sex: Male
  Weight: 29 kg

DRUGS (5)
  1. TAMIFLU [Suspect]
     Route: 048
     Dates: start: 20040220, end: 20040224
  2. SULPYRINE [Concomitant]
     Route: 048
  3. CHLORPHENIRAMINE MALEATE [Concomitant]
     Route: 048
  4. LACTOSE [Concomitant]
     Route: 048
  5. ALPINY [Concomitant]
     Route: 054

REACTIONS (2)
  - LYMPHOCYTE STIMULATION TEST POSITIVE [None]
  - MYOSITIS [None]
